FAERS Safety Report 8602672-4 (Version None)
Quarter: 2012Q3

REPORT INFORMATION
  Report Type: 
  Country: None (occurrence: None)
  Receive Date: 20120817
  Receipt Date: 20120808
  Transmission Date: 20120928
  Serious: Yes (Hospitalization)
  Sender: FDA-Public Use
  Company Number: AU-GILEAD-2012-0059497

PATIENT
  Sex: Female

DRUGS (14)
  1. VENTOLIN [Concomitant]
     Indication: DYSPNOEA
     Dosage: 5 MG, QID
     Dates: start: 20120708
  2. SPIRIVA [Concomitant]
     Indication: BRONCHIECTASIS
     Dosage: 18 ?G, UNK
     Route: 055
  3. AMOXICILLIN [Concomitant]
     Indication: PNEUMONIA
     Dosage: 250 MG, BID
     Route: 048
     Dates: start: 20120718, end: 20120728
  4. AZTREONAM [Suspect]
     Indication: BRONCHIECTASIS
     Dosage: 75 MG, TID
     Route: 048
     Dates: start: 20120626, end: 20120724
  5. PREDNISONE TAB [Concomitant]
     Indication: DYSPNOEA
     Dosage: 50 MG, QD
     Route: 048
     Dates: start: 20120708, end: 20120712
  6. ATROVENT [Concomitant]
     Indication: DYSPNOEA
     Dosage: 250 ?G, QID
     Route: 055
     Dates: start: 20120708
  7. ROXITHROMYCIN [Concomitant]
     Indication: PNEUMONIA
     Dosage: 300 MG, QD
     Route: 048
     Dates: start: 20120718, end: 20120728
  8. LIPITOR [Concomitant]
     Indication: HYPERCHOLESTEROLAEMIA
     Dosage: 20 MG, QD
     Route: 048
  9. FLUTICASONE PROPIONATE/SALMETEROL [Concomitant]
     Indication: BRONCHIECTASIS
     Dosage: 250/25 MG, BID
     Route: 055
  10. VENTOLIN [Concomitant]
     Indication: BRONCHIECTASIS
     Dosage: 5 MG, BID
     Route: 055
     Dates: end: 20120708
  11. ACETAMINOPHEN [Concomitant]
     Indication: ARTHRITIS
     Dosage: 665 MG, PRN
     Route: 048
  12. NEXIUM [Concomitant]
     Indication: GASTROOESOPHAGEAL REFLUX DISEASE
     Dosage: 40 MG, QD
     Route: 048
  13. PREDNISONE TAB [Concomitant]
     Dosage: 37.5 MG, UNK
     Route: 048
     Dates: start: 20120713, end: 20120717
  14. PREDNISONE TAB [Concomitant]
     Dosage: 25 MG, QD
     Route: 048
     Dates: start: 20120718, end: 20120725

REACTIONS (1)
  - PNEUMONIA [None]
